FAERS Safety Report 5120988-3 (Version None)
Quarter: 2006Q4

REPORT INFORMATION
  Report Type: 
  Country: None (occurrence: None)
  Receive Date: 20061005
  Receipt Date: 20060915
  Transmission Date: 20070319
  Serious: Yes (Other)
  Sender: FDA-Public Use
  Company Number: PHBS2006KR14287

PATIENT
  Age: 27 Year
  Sex: Male

DRUGS (3)
  1. CLOZAPINE [Suspect]
     Dosage: 250 MG/DAY
     Dates: start: 19970101
  2. CLOZAPINE [Suspect]
     Dosage: 450 MG/DAY
  3. FLUVOXAMINE MALEATE [Concomitant]
     Dosage: 100 MG/DAY

REACTIONS (4)
  - CONVULSION [None]
  - DROOLING [None]
  - ENURESIS [None]
  - OBSESSIVE-COMPULSIVE DISORDER [None]
